FAERS Safety Report 6156952-5 (Version None)
Quarter: 2009Q2

REPORT INFORMATION
  Report Type: 
  Country: None (occurrence: None)
  Receive Date: 20090416
  Receipt Date: 20090410
  Transmission Date: 20091009
  Serious: Yes (Life-Threatening)
  Sender: FDA-Public Use
  Company Number: B0567378A

PATIENT
  Sex: Female

DRUGS (7)
  1. PROPAFENONE HYDROCHLORIDE [Suspect]
     Indication: ATRIAL FIBRILLATION
     Dosage: 225MG THREE TIMES PER DAY
     Route: 048
     Dates: start: 20090305, end: 20090308
  2. TRITACE [Concomitant]
  3. INDAPAMIDE [Concomitant]
     Route: 048
  4. BISOMERCK [Concomitant]
     Dosage: 2.5MG PER DAY
  5. SIMVASTATIN [Concomitant]
     Dosage: 20MG PER DAY
     Route: 048
  6. ANOPYRIN [Concomitant]
  7. EUTHYROX [Concomitant]

REACTIONS (4)
  - DIARRHOEA [None]
  - NAUSEA [None]
  - PALPITATIONS [None]
  - VENTRICULAR EXTRASYSTOLES [None]
